FAERS Safety Report 9345627 (Version 1)
Quarter: 2013Q2

REPORT INFORMATION
  Report Type: Spontaneous
  Country: US (occurrence: US)
  Receive Date: 20130613
  Receipt Date: 20130613
  Transmission Date: 20140414
  Serious: Yes (Other)
  Sender: FDA-Public Use
  Company Number: US-BAYER-2013-070874

PATIENT
  Age: 44 Year
  Sex: Female
  Weight: 75 kg

DRUGS (8)
  1. YAZ [Suspect]
     Dosage: UNK
  2. GIANVI [Suspect]
  3. METOPROLOL SUCCINATE [Concomitant]
     Dosage: 50 MG, UNK
     Dates: start: 20120625
  4. FISH OIL [Concomitant]
     Dosage: 1000 MG, UNK
     Dates: start: 20120625
  5. METAMUCIL [Concomitant]
     Dosage: 30.9 %, UNK
     Dates: start: 20120625
  6. ADVIL [Concomitant]
  7. OMEPRAZOLE [Concomitant]
  8. KEFLEX [Concomitant]

REACTIONS (1)
  - Thrombophlebitis [None]
